FAERS Safety Report 17172770 (Version 3)
Quarter: 2020Q3

REPORT INFORMATION
  Report Type: Spontaneous
  Country: US (occurrence: US)
  Receive Date: 20191219
  Receipt Date: 20200716
  Transmission Date: 20201102
  Serious: Yes (Other)
  Sender: FDA-Public Use
  Company Number: US-SA-2019SA348081

PATIENT

DRUGS (5)
  1. PARAPLATIN [Concomitant]
     Active Substance: CARBOPLATIN
     Indication: NEOPLASM MALIGNANT
     Dosage: UNK
     Dates: start: 20150723, end: 20151112
  2. PERJETA [Concomitant]
     Active Substance: PERTUZUMAB
     Indication: NEOPLASM MALIGNANT
     Dosage: UNK
     Dates: start: 20150723, end: 20151112
  3. HERCEPTIN [Concomitant]
     Active Substance: TRASTUZUMAB
     Indication: NEOPLASM MALIGNANT
     Dosage: UNK
     Dates: start: 20150723, end: 20151112
  4. TAXOTERE [Suspect]
     Active Substance: DOCETAXEL
     Dosage: UNK, Q3W
     Route: 065
     Dates: start: 20151112, end: 20151112
  5. TAXOTERE [Suspect]
     Active Substance: DOCETAXEL
     Indication: NEOPLASM MALIGNANT
     Dosage: UNK, Q3W
     Route: 065
     Dates: start: 20150723, end: 20150723

REACTIONS (2)
  - Emotional distress [Unknown]
  - Alopecia [Recovering/Resolving]

NARRATIVE: CASE EVENT DATE: 201604
